FAERS Safety Report 24579121 (Version 1)
Quarter: 2024Q4

REPORT INFORMATION
  Report Type: Spontaneous
  Country: IN (occurrence: IN)
  Receive Date: 20241105
  Receipt Date: 20241105
  Transmission Date: 20250114
  Serious: Yes (Other)
  Sender: ACCORD
  Company Number: IN-MLMSERVICE-20241018-PI231045-00095-1

PATIENT
  Age: 52 Year
  Sex: Female

DRUGS (6)
  1. HYDROXYCHLOROQUINE [Suspect]
     Active Substance: HYDROXYCHLOROQUINE
     Indication: COVID-19
     Dosage: 2 TABLETS BD ON DAY 1
     Dates: start: 202102, end: 202102
  2. ACETAMINOPHEN [Concomitant]
     Active Substance: ACETAMINOPHEN
     Indication: COVID-19
     Dates: start: 202102
  3. VITAMIN C [Concomitant]
     Active Substance: ASCORBIC ACID
     Indication: COVID-19
     Dates: start: 202102
  4. VITAMIN D [Concomitant]
     Active Substance: VITAMIN D NOS
     Indication: COVID-19
     Dates: start: 202102
  5. ZINC [Concomitant]
     Active Substance: ZINC
     Indication: COVID-19
     Dates: start: 202102
  6. HYDROXYCHLOROQUINE [Suspect]
     Active Substance: HYDROXYCHLOROQUINE
     Indication: COVID-19
     Dosage: 1 TAB BD FOR NEXT 5 DAYS
     Dates: start: 202102, end: 2021

REACTIONS (1)
  - Cornea verticillata [Recovered/Resolved]

NARRATIVE: CASE EVENT DATE: 20210201
